FAERS Safety Report 5524226-9 (Version None)
Quarter: 2007Q4

REPORT INFORMATION
  Report Type: 
  Country: None (occurrence: None)
  Receive Date: 20071121
  Receipt Date: 20071112
  Transmission Date: 20080405
  Serious: Yes (Other)
  Sender: FDA-Public Use
  Company Number: US-PFIZER INC-2007082579

PATIENT

DRUGS (7)
  1. LYRICA [Suspect]
  2. RITUXIMAB [Concomitant]
     Indication: LYMPHOMA
  3. CYCLOPHOSPHAMIDE [Concomitant]
     Indication: LYMPHOMA
  4. DOXORUBICIN HCL [Concomitant]
     Indication: LYMPHOMA
  5. VINCRISTINE [Concomitant]
     Indication: LYMPHOMA
  6. PREDNISOLONE [Concomitant]
     Indication: LYMPHOMA
  7. METFORMIN HCL [Concomitant]

REACTIONS (3)
  - IIIRD NERVE PARALYSIS [None]
  - METASTASES TO MENINGES [None]
  - NEOPLASM MALIGNANT [None]
